FAERS Safety Report 8061081-X (Version None)
Quarter: 2012Q1

REPORT INFORMATION
  Report Type: 
  Country: None (occurrence: None)
  Receive Date: 20120120
  Receipt Date: 20110623
  Transmission Date: 20120608
  Serious: No
  Sender: FDA-Public Use
  Company Number: US-ALLERGAN-1016555US

PATIENT
  Age: 62 Year
  Sex: Male

DRUGS (3)
  1. VISION CLEAR [Concomitant]
     Indication: NUTRITIONAL SUPPORT
     Dosage: 3 DF, QD
     Route: 048
  2. RESTASIS [Suspect]
     Indication: DRY EYE
     Dosage: 1 GTT, BID
     Route: 047
     Dates: start: 20101214
  3. MULTI-VITAMINS [Concomitant]
     Indication: NUTRITIONAL SUPPORT
     Dosage: 1 DF, QD
     Route: 048

REACTIONS (2)
  - VISION BLURRED [None]
  - DRUG INEFFECTIVE [None]
